FAERS Safety Report 6291792-8 (Version None)
Quarter: 2009Q3

REPORT INFORMATION
  Report Type: 
  Country: None (occurrence: None)
  Receive Date: 20090730
  Receipt Date: 20090722
  Transmission Date: 20100115
  Serious: Yes (Hospitalization, Other)
  Sender: FDA-Public Use
  Company Number: FR-ABBOTT-09P-056-0584513-00

PATIENT
  Sex: Female
  Weight: 47 kg

DRUGS (5)
  1. TARKA [Suspect]
     Indication: HYPERTENSION
     Route: 048
     Dates: start: 20090608, end: 20090716
  2. TARKA [Suspect]
     Route: 048
     Dates: start: 20090616, end: 20090630
  3. SEROPLEX [Suspect]
     Indication: DEPRESSION
     Route: 048
     Dates: start: 20090616, end: 20090630
  4. LEXOMIL [Concomitant]
     Indication: DEPRESSION
     Dosage: 1/4 TABLET, 1/4 TABLET, 1/2 TABLET DAILY
     Route: 048
  5. ZOPICLONE [Concomitant]
     Indication: INSOMNIA
     Dates: start: 20090616

REACTIONS (2)
  - CYTOLYTIC HEPATITIS [None]
  - HEPATITIS [None]
